FAERS Safety Report 7589493-9 (Version None)
Quarter: 2011Q3

REPORT INFORMATION
  Report Type: 
  Country: None (occurrence: None)
  Receive Date: 20110705
  Receipt Date: 20110620
  Transmission Date: 20111222
  Serious: Yes (Hospitalization)
  Sender: FDA-Public Use
  Company Number: FR-ROCHE-785321

PATIENT
  Age: 72 Year
  Sex: Male

DRUGS (1)
  1. CELLCEPT [Suspect]
     Dosage: DOSE: 4 TABLETS DAILY.
     Route: 065

REACTIONS (4)
  - PERIPHERAL VASCULAR DISORDER [None]
  - CHOLELITHIASIS [None]
  - VERTIGO POSITIONAL [None]
  - HYPERURICAEMIA [None]
